FAERS Safety Report 12809885 (Version 1)
Quarter: 2016Q4

REPORT INFORMATION
  Report Type: Report from Study
  Country: US (occurrence: US)
  Receive Date: 20161005
  Receipt Date: 20161005
  Transmission Date: 20170207
  Serious: Yes (Other)
  Sender: FDA-Public Use
  Company Number: US-ROCHE-784346

PATIENT
  Age: 65 Year
  Sex: Male
  Weight: 77.9 kg

DRUGS (12)
  1. BEVACIZUMAB [Suspect]
     Active Substance: BEVACIZUMAB
     Indication: CARCINOID TUMOUR
     Dosage: LAST DOSE PRIOR TO SAE: 03/MAY/2011, FREQUENCY: OVER 30-90 MIN ON DAYS 1 AND 15, COURSES REPEAT EVER
     Route: 042
  2. AVODART [Concomitant]
     Active Substance: DUTASTERIDE
  3. LEVOTHYROXINE. [Concomitant]
     Active Substance: LEVOTHYROXINE
  4. SIMVASTATIN. [Concomitant]
     Active Substance: SIMVASTATIN
  5. METOPROLOL. [Concomitant]
     Active Substance: METOPROLOL
  6. ZOLPIDEM [Concomitant]
     Active Substance: ZOLPIDEM\ZOLPIDEM TARTRATE
  7. BEVACIZUMAB [Suspect]
     Active Substance: BEVACIZUMAB
     Dosage: FREQUENCY: OVER 30-90 MIN ON DAYS 1 AND 15, COURSES REPEAT EVERY 28 DAYS?COURSE 6
     Route: 042
     Dates: start: 20110503, end: 20110517
  8. TEMSIROLIMUS [Suspect]
     Active Substance: TEMSIROLIMUS
     Indication: CARCINOID TUMOUR
     Dosage: FREQUENCY: ON DAYS 1, 18, 15 AND 22, COURSES REPEAT EVERY 28 DAYS?COURSE 1 TO 9
     Route: 042
  9. AMLODIPINE [Concomitant]
     Active Substance: AMLODIPINE BESYLATE
  10. SANDOSTATIN [Concomitant]
     Active Substance: OCTREOTIDE ACETATE
  11. TEMSIROLIMUS [Suspect]
     Active Substance: TEMSIROLIMUS
     Dosage: FREQUENCY: ON DAYS 1, 18, 15 AND 22, COURSES REPEAT EVERY 28 DAYS?COURSE 10
     Route: 042
     Dates: start: 20110823, end: 20110906
  12. TAMSULOSIN [Concomitant]
     Active Substance: TAMSULOSIN

REACTIONS (3)
  - Embolism [Unknown]
  - Acidosis [Unknown]
  - Posterior reversible encephalopathy syndrome [Recovered/Resolved]

NARRATIVE: CASE EVENT DATE: 20110515
